FAERS Safety Report 26151043 (Version 1)
Quarter: 2025Q4

REPORT INFORMATION
  Report Type: Spontaneous
  Country: US (occurrence: US)
  Receive Date: 20251212
  Receipt Date: 20251212
  Transmission Date: 20260118
  Serious: Yes (Other)
  Sender: SANOFI AVENTIS
  Company Number: US-SA-2025SA370287

PATIENT
  Age: 47 Year
  Sex: Female

DRUGS (2)
  1. DUPIXENT [Suspect]
     Active Substance: DUPILUMAB
     Indication: Neurodermatitis
     Dosage: 600 MG, 1X
     Route: 058
     Dates: start: 20251021, end: 20251021
  2. DUPIXENT [Suspect]
     Active Substance: DUPILUMAB
     Dosage: 300MG
     Route: 058
     Dates: start: 202511

REACTIONS (4)
  - Rectal haemorrhage [Recovering/Resolving]
  - Eyelid cyst [Recovered/Resolved]
  - Eczema [Not Recovered/Not Resolved]
  - Blepharitis [Recovered/Resolved]

NARRATIVE: CASE EVENT DATE: 20250101
